FAERS Safety Report 21657572 (Version 1)
Quarter: 2022Q4

REPORT INFORMATION
  Report Type: Report from Study
  Country: DE (occurrence: DE)
  Receive Date: 20221129
  Receipt Date: 20221129
  Transmission Date: 20230113
  Serious: Yes (Other)
  Sender: FDA-Public Use
  Company Number: DE-002147023-PHHY2019DE064794

PATIENT
  Sex: Female

DRUGS (10)
  1. RAMIPRIL [Suspect]
     Active Substance: RAMIPRIL
     Indication: Hypertension
     Dosage: 10 MG, (AT THE MORNING), QD
     Dates: start: 20161207, end: 20170401
  2. RAMIPRIL [Suspect]
     Active Substance: RAMIPRIL
     Dosage: 2.5 MG, QD (AT THE MORNING)
     Route: 065
     Dates: start: 20160822, end: 20160904
  3. RAMIPRIL [Suspect]
     Active Substance: RAMIPRIL
     Dosage: 5 MG, (AT THE MORNING), QD
     Route: 065
     Dates: start: 20160905, end: 20161206
  4. GILENYA [Suspect]
     Active Substance: FINGOLIMOD HYDROCHLORIDE
     Indication: Multiple sclerosis
     Dosage: 0.5 MG, QD
     Route: 048
     Dates: start: 20160616
  5. AMLODIPINE BESYLATE\PERINDOPRIL ARGININE [Concomitant]
     Active Substance: AMLODIPINE BESYLATE\PERINDOPRIL ARGININE
     Indication: Hypertension
     Dosage: 7MG/ 5MG, QD
     Route: 065
     Dates: start: 20170401
  6. Kalinor [Concomitant]
     Indication: Hypertension
     Dosage: 1.56 G, QD
     Route: 065
     Dates: start: 20161208, end: 20161212
  7. RAMIPRIL [Concomitant]
     Active Substance: RAMIPRIL
     Indication: Hypertension
     Dosage: 0.5 DOSAGE FORM (5 MG), QD
     Route: 065
     Dates: start: 20160822, end: 20160904
  8. RAMIPRIL [Concomitant]
     Active Substance: RAMIPRIL
     Dosage: 10 MG
     Route: 065
     Dates: start: 20161207, end: 20170401
  9. RAMIPRIL [Concomitant]
     Active Substance: RAMIPRIL
     Dosage: 1 DOSAGE FORM (5 MG), QD
     Route: 065
     Dates: start: 20160905, end: 20161206
  10. MIRTAZAPINE [Concomitant]
     Active Substance: MIRTAZAPINE
     Indication: Sleep disorder
     Dosage: 15 MG
     Route: 065

REACTIONS (2)
  - Hypokalaemia [Unknown]
  - Central nervous system lesion [Unknown]
